FAERS Safety Report 24669497 (Version 1)
Quarter: 2024Q4

REPORT INFORMATION
  Report Type: Spontaneous
  Country: US (occurrence: US)
  Receive Date: 20241127
  Receipt Date: 20241127
  Transmission Date: 20250114
  Serious: Yes (Hospitalization, Other)
  Sender: BRISTOL-MYERS SQUIBB COMPANY
  Company Number: US-BRISTOL-MYERS SQUIBB COMPANY-2024-180444

PATIENT
  Age: 69 Year
  Sex: Female
  Weight: 93 kg

DRUGS (14)
  1. REVLIMID [Suspect]
     Active Substance: LENALIDOMIDE
     Indication: Plasma cell myeloma
     Dosage: 1 CAPSULE DAILY X 21 DAYS THEN 7 DAYS OFF
     Route: 048
     Dates: start: 20241008
  2. REVLIMID [Suspect]
     Active Substance: LENALIDOMIDE
     Dosage: DOSE REDUCED
     Dates: start: 20241108
  3. ATENOLOL [Concomitant]
     Active Substance: ATENOLOL
  4. ATORVASTATIN [Concomitant]
     Active Substance: ATORVASTATIN
  5. GABAPENTIN [Concomitant]
     Active Substance: GABAPENTIN
  6. IBUPROFEN [Concomitant]
     Active Substance: IBUPROFEN
  7. METFORMIN HYDROCHLORIDE [Concomitant]
     Active Substance: METFORMIN HYDROCHLORIDE
  8. TIZANIDINE [Concomitant]
     Active Substance: TIZANIDINE
  9. ASPIRIN [Concomitant]
     Active Substance: ASPIRIN
  10. ACYCLOVIR [Concomitant]
     Active Substance: ACYCLOVIR
  11. ALLOPURINOL [Concomitant]
     Active Substance: ALLOPURINOL
  12. DEXAMETHASONE [Concomitant]
     Active Substance: DEXAMETHASONE
  13. MEDROL [Concomitant]
     Active Substance: METHYLPREDNISOLONE
  14. ONDANSETRON [Concomitant]
     Active Substance: ONDANSETRON

REACTIONS (2)
  - Metastases to bone [Unknown]
  - Pathological fracture [Unknown]
